FAERS Safety Report 7515323-7 (Version None)
Quarter: 2011Q2

REPORT INFORMATION
  Report Type: 
  Country: None (occurrence: None)
  Receive Date: 20110601
  Receipt Date: 20100619
  Transmission Date: 20111010
  Serious: Yes (Other)
  Sender: FDA-Public Use
  Company Number: US-PFIZER INC-2010076943

PATIENT
  Sex: Male

DRUGS (1)
  1. CHANTIX [Suspect]
     Dosage: UNK
     Dates: start: 20070101

REACTIONS (4)
  - SUICIDE ATTEMPT [None]
  - MENTAL DISORDER [None]
  - DEPRESSION [None]
  - ANXIETY [None]
